FAERS Safety Report 7236740-9 (Version None)
Quarter: 2011Q1

REPORT INFORMATION
  Report Type: 
  Country: None (occurrence: None)
  Receive Date: 20110120
  Receipt Date: 20110114
  Transmission Date: 20110831
  Serious: Yes (Hospitalization)
  Sender: FDA-Public Use
  Company Number: US-B.I. PHARMACEUTICALS,INC./RIDGEFIELD-2011-BP-00534BP

PATIENT
  Age: 87 Year
  Sex: Female

DRUGS (6)
  1. ATENOLOL [Concomitant]
     Indication: HYPERTENSION
     Dosage: 100 MG
     Route: 048
  2. PLAVIX [Concomitant]
     Indication: TRANSIENT ISCHAEMIC ATTACK
     Dosage: 75 MG
     Route: 048
  3. CATAPRES-TTS-1 [Suspect]
     Indication: HYPERTENSION
     Dosage: 0.3 MG
     Route: 061
     Dates: start: 20100801
  4. LASIX [Concomitant]
     Indication: FLUID RETENTION
     Dosage: 40 MG
     Route: 048
  5. LIPITOR [Concomitant]
     Indication: BLOOD CHOLESTEROL INCREASED
     Dosage: 20 MG
     Route: 048
  6. ATICAN [Concomitant]
     Dosage: 32 MG
     Route: 048

REACTIONS (6)
  - RENAL ARTERY STENOSIS [None]
  - APPLICATION SITE PRURITUS [None]
  - CHEST PAIN [None]
  - BLOOD PRESSURE INCREASED [None]
  - EPISTAXIS [None]
  - APPLICATION SITE ERYTHEMA [None]
